FAERS Safety Report 25620135 (Version 1)
Quarter: 2025Q3

REPORT INFORMATION
  Report Type: Spontaneous
  Country: IR (occurrence: IR)
  Receive Date: 20250730
  Receipt Date: 20250730
  Transmission Date: 20251020
  Serious: Yes (Hospitalization, Other)
  Sender: OXFORD PHARMACEUTICALS, LLC
  Company Number: IR-Oxford Pharmaceuticals, LLC-2181480

PATIENT
  Age: 53 Year
  Sex: Male

DRUGS (3)
  1. ALPRAZOLAM [Suspect]
     Active Substance: ALPRAZOLAM
     Indication: Product used for unknown indication
  2. CLONAZEPAM [Suspect]
     Active Substance: CLONAZEPAM
  3. HALOPERIDOL [Suspect]
     Active Substance: HALOPERIDOL

REACTIONS (4)
  - Neuroleptic malignant syndrome [Recovered/Resolved]
  - Withdrawal syndrome [Unknown]
  - Catatonia [Unknown]
  - Drug dependence [Unknown]
